FAERS Safety Report 7584152-0 (Version None)
Quarter: 2011Q2

REPORT INFORMATION
  Report Type: 
  Country: None (occurrence: None)
  Receive Date: 20110630
  Receipt Date: 20110628
  Transmission Date: 20111010
  Serious: Yes (Hospitalization)
  Sender: FDA-Public Use
  Company Number: JP-PFIZER INC-2011102775

PATIENT
  Age: 12 Year
  Sex: Female

DRUGS (3)
  1. SANDIMMUNE [Suspect]
     Indication: APLASTIC ANAEMIA
     Dosage: UNK
  2. VFEND [Suspect]
     Indication: INFECTION
     Dosage: UNK
  3. VFEND [Suspect]
     Dosage: 400 MG, 2X/DAY
     Route: 042

REACTIONS (1)
  - PROTEINURIA [None]
